FAERS Safety Report 8098622-2 (Version None)
Quarter: 2012Q1

REPORT INFORMATION
  Report Type: 
  Country: None (occurrence: None)
  Receive Date: 20120129
  Receipt Date: 20111024
  Transmission Date: 20120608
  Serious: No
  Sender: FDA-Public Use
  Company Number: US-ABBOTT-11P-163-0867643-00

PATIENT
  Sex: Female

DRUGS (12)
  1. NEXIUM [Concomitant]
     Indication: ABDOMINAL DISCOMFORT
  2. HUMIRA [Suspect]
     Indication: CROHN'S DISEASE
     Dosage: (160 MG DAY ONE)
     Route: 058
     Dates: start: 20111020
  3. ASPIRIN [Concomitant]
     Indication: PRODUCT USED FOR UNKNOWN INDICATION
  4. OXYCODONE HCL [Concomitant]
     Indication: PAIN
     Dosage: EVERY 4-6 HOURS, PRN
  5. CELEBREX [Concomitant]
     Indication: ARTHRALGIA
  6. PYRIDOXINE HCL [Concomitant]
     Indication: PRODUCT USED FOR UNKNOWN INDICATION
  7. AMLODIPINE [Concomitant]
     Indication: BLOOD PRESSURE INCREASED
  8. FOLIC ACID [Concomitant]
     Indication: VITAMIN SUPPLEMENTATION
  9. CALCIUM [Concomitant]
     Indication: PRODUCT USED FOR UNKNOWN INDICATION
  10. ISONIAZID [Concomitant]
     Indication: TUBERCULOSIS
  11. STOOL SOFTENER [Concomitant]
     Indication: PRODUCT USED FOR UNKNOWN INDICATION
  12. METHOTREXATE [Concomitant]
     Indication: PRODUCT USED FOR UNKNOWN INDICATION
     Dosage: 4 TABLETS WEEKLY

REACTIONS (1)
  - INJECTION SITE PAIN [None]
